FAERS Safety Report 7120167-4 (Version None)
Quarter: 2010Q4

REPORT INFORMATION
  Report Type: 
  Country: None (occurrence: None)
  Receive Date: 20101123
  Receipt Date: 20101117
  Transmission Date: 20110411
  Serious: Yes (Death)
  Sender: FDA-Public Use
  Company Number: VE-PFIZER INC-2010141101

PATIENT
  Age: 90 Year
  Sex: Male

DRUGS (2)
  1. ZOLOFT [Suspect]
     Indication: DEPRESSION
     Dosage: 50 MG, 1X/DAY
     Route: 048
     Dates: start: 20100201
  2. CARDIPRIN [Concomitant]
     Indication: CARDIAC DISORDER
     Dosage: UNK, 1X/DAY
     Route: 048

REACTIONS (1)
  - RESPIRATORY ARREST [None]
